FAERS Safety Report 5868976-3 (Version None)
Quarter: 2008Q3

REPORT INFORMATION
  Report Type: 
  Country: None (occurrence: None)
  Receive Date: 20080828
  Receipt Date: 20080815
  Transmission Date: 20090109
  Serious: Yes (Death, Hospitalization)
  Sender: FDA-Public Use
  Company Number: 2008AL009630

PATIENT
  Age: 73 Year
  Sex: Female

DRUGS (1)
  1. DIGOXIN [Suspect]
     Indication: MYOCARDIAL INFARCTION
     Dosage: DAILY, PO
     Route: 048
     Dates: start: 20070101, end: 20070601

REACTIONS (1)
  - RENAL FAILURE [None]
